FAERS Safety Report 11894707 (Version 2)
Quarter: 2016Q1

REPORT INFORMATION
  Report Type: Spontaneous
  Country: DE (occurrence: DE)
  Receive Date: 20160107
  Receipt Date: 20160111
  Transmission Date: 20160526
  Serious: Yes (Hospitalization, Other)
  Sender: FDA-Public Use
  Company Number: DE-NOVOPROD-475263

PATIENT
  Age: 15 Year
  Sex: Female

DRUGS (2)
  1. NOVONORM [Suspect]
     Active Substance: REPAGLINIDE
     Indication: MONOGENIC DIABETES
     Dosage: UNK
     Route: 065
  2. NOVONORM [Suspect]
     Active Substance: REPAGLINIDE
     Dosage: 10.5 MG, SINGLE (21 TABLETS, 0.5 MG EACH)
     Route: 065

REACTIONS (2)
  - Suicide attempt [Recovered/Resolved]
  - Hypoglycaemia [Unknown]
